FAERS Safety Report 4499345-9 (Version None)
Quarter: 2004Q4

REPORT INFORMATION
  Report Type: 
  Country: None (occurrence: None)
  Receive Date: 20041111
  Receipt Date: 20040928
  Transmission Date: 20050328
  Serious: Yes (Hospitalization, Disabling, Other)
  Sender: FDA-Public Use
  Company Number: US-MERCK-0409USA02479

PATIENT
  Age: 77 Year
  Sex: Female
  Weight: 59 kg

DRUGS (8)
  1. FOSAMAX [Suspect]
     Indication: OSTEOPOROSIS
     Route: 048
     Dates: start: 20040608, end: 20040608
  2. SYNTHROID [Concomitant]
     Indication: HYPOTHYROIDISM
     Route: 048
  3. THEOPHYLLINE [Concomitant]
     Indication: ASTHMA
     Route: 048
  4. BEXTRA [Concomitant]
     Indication: OSTEOARTHRITIS
     Route: 048
  5. CALCIUM (UNSPECIFIED) AND VITAMIN D (UNSPECIFIED) [Concomitant]
     Indication: OSTEOPOROSIS
     Route: 048
     Dates: end: 20040612
  6. CALCIUM (UNSPECIFIED) AND VITAMIN D (UNSPECIFIED) [Concomitant]
     Route: 048
     Dates: start: 20040613
  7. GLUCOSAMINE [Concomitant]
     Indication: OSTEOARTHRITIS
     Route: 048
  8. ASCORBIC ACID [Concomitant]
     Route: 065

REACTIONS (8)
  - ABDOMINAL TENDERNESS [None]
  - DEHYDRATION [None]
  - DIZZINESS [None]
  - GAIT DISTURBANCE [None]
  - HYPERTENSION [None]
  - HYPOAESTHESIA ORAL [None]
  - NAUSEA [None]
  - NON-CARDIAC CHEST PAIN [None]
